FAERS Safety Report 9165549 (Version 1)
Quarter: 2013Q1

REPORT INFORMATION
  Report Type: Spontaneous
  Country: US (occurrence: US)
  Receive Date: 20130315
  Receipt Date: 20130315
  Transmission Date: 20140127
  Serious: No
  Sender: FDA-Public Use
  Company Number: US-BAYER-2013-032410

PATIENT
  Age: 59 Year
  Sex: Female
  Weight: 75.74 kg

DRUGS (2)
  1. ALEVE [Suspect]
     Indication: ARTHRALGIA
     Dosage: 1 DF, PRN
     Route: 048
  2. ALEVE [Suspect]
     Indication: ARTHRALGIA
     Dosage: 4 DF, EVERY DAY
     Route: 048
     Dates: start: 2010

REACTIONS (1)
  - Overdose [None]
